FAERS Safety Report 7586381-9 (Version None)
Quarter: 2011Q3

REPORT INFORMATION
  Report Type: 
  Country: None (occurrence: None)
  Receive Date: 20110701
  Receipt Date: 20110610
  Transmission Date: 20111222
  Serious: Yes (Death, Hospitalization)
  Sender: FDA-Public Use
  Company Number: A0890109A

PATIENT
  Age: 70 Year
  Sex: Female

DRUGS (1)
  1. AVANDIA [Suspect]
     Indication: DIABETES MELLITUS
     Dosage: 4MG PER DAY

REACTIONS (9)
  - PNEUMONIA [None]
  - CORONARY ARTERY DISEASE [None]
  - PULMONARY EMBOLISM [None]
  - HYPERTENSIVE HEART DISEASE [None]
  - CEREBROVASCULAR ACCIDENT [None]
  - ATRIAL FIBRILLATION [None]
  - CARDIOMYOPATHY [None]
  - PULSELESS ELECTRICAL ACTIVITY [None]
  - ARTERIOSCLEROSIS [None]
